FAERS Safety Report 8771042 (Version 1)
Quarter: 2012Q4

REPORT INFORMATION
  Report Type: 
  Country: US (occurrence: US)
  Receive Date: 20120906
  Receipt Date: 20120906
  Transmission Date: 20130627
  Serious: Yes (Other)
  Sender: FDA-Public Use
  Company Number: US-PFIZER INC-2012217423

PATIENT
  Sex: Female

DRUGS (1)
  1. CHANTIX [Suspect]
     Dosage: UNK
     Dates: start: 200907

REACTIONS (4)
  - Suicidal ideation [Unknown]
  - Loss of consciousness [Unknown]
  - Depression [Unknown]
  - Anxiety [Unknown]
